FAERS Safety Report 4500912-4 (Version None)
Quarter: 2004Q4

REPORT INFORMATION
  Report Type: 
  Country: None (occurrence: None)
  Receive Date: 20041110
  Receipt Date: 20041101
  Transmission Date: 20050328
  Serious: Yes (Hospitalization)
  Sender: FDA-Public Use
  Company Number: A03200401807

PATIENT
  Age: 49 Year
  Sex: Female
  Weight: 58.514 kg

DRUGS (1)
  1. ELOXATIN [Suspect]
     Indication: RECTAL CANCER
     Dosage: 100 MG Q2W - INTRAVENOUS  NOS
     Route: 042

REACTIONS (1)
  - CONVULSION [None]
